FAERS Safety Report 9766116 (Version 2)
Quarter: 2014Q1

REPORT INFORMATION
  Report Type: Report from Study
  Country: GT (occurrence: GT)
  Receive Date: 20131217
  Receipt Date: 20140220
  Transmission Date: 20141002
  Serious: Yes (Other)
  Sender: FDA-Public Use
  Company Number: GT-SHIRE-ALL1-2013-08636

PATIENT
  Age: 13 Year
  Sex: Male

DRUGS (1)
  1. IDURSULFASE [Suspect]
     Indication: MUCOPOLYSACCHARIDOSIS II
     Dosage: UNK, UNKNOWN
     Route: 041

REACTIONS (6)
  - Anaphylactic reaction [Unknown]
  - Infusion related reaction [Unknown]
  - Oedema [Unknown]
  - Rash [Unknown]
  - Hypotension [Unknown]
  - Pyrexia [Unknown]
